FAERS Safety Report 16088351 (Version 1)
Quarter: 2019Q1

REPORT INFORMATION
  Report Type: Spontaneous
  Country: US (occurrence: US)
  Receive Date: 20190215
  Receipt Date: 20190215
  Transmission Date: 20190418
  Serious: No
  Sender: FDA-Public Use
  Company Number: None

PATIENT
  Age: 48 Year
  Sex: Male

DRUGS (4)
  1. ELIQUIS [Concomitant]
     Active Substance: APIXABAN
  2. LYRICA [Concomitant]
     Active Substance: PREGABALIN
  3. FINASTERIDE. [Concomitant]
     Active Substance: FINASTERIDE
  4. TEMOZOLOMIDE 100MG CAP [Suspect]
     Active Substance: TEMOZOLOMIDE
     Route: 048
     Dates: start: 20190204

REACTIONS (3)
  - Nausea [None]
  - Drug ineffective [None]
  - Constipation [None]

NARRATIVE: CASE EVENT DATE: 20190204
